FAERS Safety Report 25725280 (Version 1)
Quarter: 2025Q3

REPORT INFORMATION
  Report Type: Spontaneous
  Country: EU (occurrence: EU)
  Receive Date: 20250826
  Receipt Date: 20250826
  Transmission Date: 20251021
  Serious: Yes (Life-Threatening, Other)
  Sender: AUROBINDO
  Company Number: EU-URPL-DML-MLP.4401.1.3231.2021

PATIENT
  Age: 41 Year
  Sex: Female
  Weight: 47 kg

DRUGS (2)
  1. NEBIVOLOL [Suspect]
     Active Substance: NEBIVOLOL
     Indication: Product used for unknown indication
     Route: 065
     Dates: start: 20210511
  2. OLMESARTAN [Suspect]
     Active Substance: OLMESARTAN
     Indication: Product used for unknown indication
     Route: 065
     Dates: start: 20210511

REACTIONS (4)
  - Suicide attempt [Unknown]
  - Restlessness [Recovered/Resolved]
  - Depressed mood [Recovered/Resolved]
  - Tearfulness [Recovered/Resolved]

NARRATIVE: CASE EVENT DATE: 20210511
